FAERS Safety Report 17994406 (Version 1)
Quarter: 2020Q3

REPORT INFORMATION
  Report Type: Spontaneous
  Country: US (occurrence: US)
  Receive Date: 20200708
  Receipt Date: 20200708
  Transmission Date: 20201103
  Serious: Yes (Death)
  Sender: FDA-Public Use
  Company Number: None

PATIENT
  Age: 73 Year
  Sex: Female

DRUGS (2)
  1. TEMOZOLOMIDE, 250 MG [Suspect]
     Active Substance: TEMOZOLOMIDE
     Route: 048
  2. TEMOZOLOMIDE, 20MG [Suspect]
     Active Substance: TEMOZOLOMIDE
     Route: 048

REACTIONS (1)
  - Hospice care [None]
